FAERS Safety Report 6419874-8 (Version None)
Quarter: 2009Q4

REPORT INFORMATION
  Report Type: 
  Country: None (occurrence: None)
  Receive Date: 20091029
  Receipt Date: 20091020
  Transmission Date: 20100525
  Serious: Yes (Hospitalization, Disabling, Other)
  Sender: FDA-Public Use
  Company Number: US-MERCK-0612USA04040

PATIENT
  Age: 55 Year
  Sex: Female
  Weight: 56 kg

DRUGS (1)
  1. FOSAMAX [Suspect]
     Indication: OSTEOPOROSIS
     Route: 048
     Dates: start: 19970101, end: 20061219

REACTIONS (38)
  - ABDOMINAL DISCOMFORT [None]
  - ADHESION [None]
  - ARTHRALGIA [None]
  - BACK DISORDER [None]
  - BACK PAIN [None]
  - BONE DISORDER [None]
  - BONE PAIN [None]
  - COUGH [None]
  - DEHYDRATION [None]
  - DERMAL CYST [None]
  - ELECTROLYTE IMBALANCE [None]
  - FUNGAL INFECTION [None]
  - GASTROENTERITIS [None]
  - GINGIVITIS [None]
  - HEADACHE [None]
  - HORMONE LEVEL ABNORMAL [None]
  - HYPERTONIC BLADDER [None]
  - HYPOKALAEMIA [None]
  - HYPONATRAEMIA [None]
  - INFECTION [None]
  - KIDNEY INFECTION [None]
  - NAUSEA [None]
  - NEURALGIA [None]
  - NEUTROPENIA [None]
  - OEDEMA MOUTH [None]
  - ORAL INFECTION [None]
  - OSTEOMYELITIS [None]
  - OSTEONECROSIS [None]
  - PAIN IN JAW [None]
  - PAPILLOMA VIRAL INFECTION [None]
  - RESORPTION BONE INCREASED [None]
  - SALMONELLOSIS [None]
  - STOMATITIS [None]
  - TEMPOROMANDIBULAR JOINT SYNDROME [None]
  - TOOTH INFECTION [None]
  - TOOTHACHE [None]
  - URINARY INCONTINENCE [None]
  - URINARY TRACT INFECTION [None]
